FAERS Safety Report 9642895 (Version 1)
Quarter: 2013Q4

REPORT INFORMATION
  Report Type: Report from Study
  Country: AR (occurrence: AR)
  Receive Date: 20131024
  Receipt Date: 20131024
  Transmission Date: 20140711
  Serious: Yes (Other)
  Sender: FDA-Public Use
  Company Number: PHHY2013AR119498

PATIENT
  Age: 66 Year
  Sex: Male

DRUGS (6)
  1. GALVUS MET [Suspect]
     Indication: DIABETES MELLITUS
     Dosage: 2 DF (850/50 MG), PER DAY
     Route: 048
     Dates: start: 201308, end: 20131021
  2. DIOVAN [Suspect]
     Indication: HYPERTENSION
     Dosage: 160 MG, DAILY
     Route: 048
     Dates: start: 201308
  3. GLUCAMINOL [Concomitant]
     Indication: DIABETES MELLITUS
     Dosage: 100 MG , PER DAY (1 OF 100 MG OR 2 OF 50 MG)
     Route: 048
     Dates: end: 201308
  4. EUGLUCON [Concomitant]
     Indication: DIABETES MELLITUS
     Dosage: 5 MG, PER DAY
     Dates: end: 201308
  5. SECOTEX [Concomitant]
     Indication: NEPHROLITHIASIS
     Dosage: 1 DF, PER DAY
  6. SECOTEX [Concomitant]
     Indication: PROSTATIC DISORDER

REACTIONS (2)
  - Urticaria [Recovering/Resolving]
  - Pruritus [Not Recovered/Not Resolved]
